FAERS Safety Report 17004638 (Version 1)
Quarter: 2019Q4

REPORT INFORMATION
  Report Type: Spontaneous
  Country: AU (occurrence: AU)
  Receive Date: 20191107
  Receipt Date: 20191107
  Transmission Date: 20200122
  Serious: Yes (Other)
  Sender: FDA-Public Use
  Company Number: AU-BAYER-2019-197076

PATIENT
  Sex: Female

DRUGS (1)
  1. MIRENA [Suspect]
     Active Substance: LEVONORGESTREL
     Dosage: 20 MCG/24HR, CONT
     Route: 015
     Dates: start: 201901

REACTIONS (3)
  - Cerebrospinal fluid circulation disorder [None]
  - Brain oedema [None]
  - Adverse reaction [None]

NARRATIVE: CASE EVENT DATE: 2019
